FAERS Safety Report 9418344 (Version 1)
Quarter: 2013Q3

REPORT INFORMATION
  Report Type: Spontaneous
  Country: AU (occurrence: AU)
  Receive Date: 20130725
  Receipt Date: 20130725
  Transmission Date: 20140515
  Serious: Yes (Hospitalization)
  Sender: FDA-Public Use
  Company Number: AU-009507513-1307AUS008876

PATIENT
  Age: 31 Month
  Sex: Male

DRUGS (1)
  1. LORATADINE [Suspect]
     Dosage: 2X
     Route: 048
     Dates: start: 20090712

REACTIONS (2)
  - Accidental exposure to product by child [Unknown]
  - Overdose [Unknown]
